FAERS Safety Report 5335174-1 (Version None)
Quarter: 2007Q2

REPORT INFORMATION
  Report Type: 
  Country: None (occurrence: None)
  Receive Date: 20070525
  Receipt Date: 20070523
  Transmission Date: 20071010
  Serious: Yes (Other)
  Sender: FDA-Public Use
  Company Number: US-MERCK-0705USA03272

PATIENT
  Age: 55 Year
  Sex: Male
  Weight: 82 kg

DRUGS (4)
  1. JANUVIA [Suspect]
     Indication: DIABETES MELLITUS NON-INSULIN-DEPENDENT
     Route: 048
     Dates: end: 20070101
  2. METFORMIN [Concomitant]
     Route: 065
  3. AVANDIA [Concomitant]
     Route: 065
  4. MICARDIS [Concomitant]
     Route: 065

REACTIONS (2)
  - MICTURITION URGENCY [None]
  - URINARY INCONTINENCE [None]
